FAERS Safety Report 4446508-4 (Version None)
Quarter: 2004Q3

REPORT INFORMATION
  Report Type: 
  Country: None (occurrence: None)
  Receive Date: 20040908
  Receipt Date: 20040830
  Transmission Date: 20050211
  Serious: Yes (Hospitalization)
  Sender: FDA-Public Use
  Company Number: 04-08-1251

PATIENT
  Age: 58 Year
  Sex: Male

DRUGS (1)
  1. ENALAPRIL MALEATE [Suspect]
     Indication: HYPERTENSION
     Dosage: 20MG QD ORAL
     Route: 048

REACTIONS (6)
  - ANOREXIA [None]
  - CHOLELITHIASIS [None]
  - CHOLESTASIS [None]
  - HEPATIC NECROSIS [None]
  - HEPATOTOXICITY [None]
  - VANISHING BILE DUCT SYNDROME [None]
